FAERS Safety Report 10235782 (Version 1)
Quarter: 2014Q2

REPORT INFORMATION
  Report Type: Spontaneous
  Country: JP (occurrence: None)
  Receive Date: 20140611
  Receipt Date: 20140611
  Transmission Date: 20141212
  Serious: Yes (Other)
  Sender: FDA-Public Use
  Company Number: JP-20140220

PATIENT
  Age: 80 Year
  Sex: Male

DRUGS (1)
  1. LIPIODOL ULTRA FLUIDE [Suspect]
     Indication: THERAPEUTIC EMBOLISATION
     Route: 013

REACTIONS (4)
  - Retroperitoneal haemorrhage [None]
  - Haemoglobin decreased [None]
  - Off label use [None]
  - Arterial injury [None]
